FAERS Safety Report 4541788-9 (Version None)
Quarter: 2004Q4

REPORT INFORMATION
  Report Type: 
  Country: None (occurrence: None)
  Receive Date: 20041227
  Receipt Date: 20041213
  Transmission Date: 20050328
  Serious: Yes (Death, Other)
  Sender: FDA-Public Use
  Company Number: 2004115022

PATIENT
  Age: 66 Year
  Sex: Female

DRUGS (3)
  1. FRAGMIN [Suspect]
     Indication: THROMBOSIS PROPHYLAXIS
     Dosage: 5000 I.U. (5000 I.U.), SUBCUTANEOUS
     Route: 058
     Dates: start: 20041116, end: 20041116
  2. WARFARN SODIUM (WARFARIN SODIUM) [Concomitant]
  3. ALBYL-ENTEROSOLUBILE (ACETYLSALICYLIC ACID, MAGNESIUM OXIDE) [Concomitant]

REACTIONS (1)
  - HAEMORRHAGIC TRANSFORMATION STROKE [None]
